FAERS Safety Report 13630845 (Version 1)
Quarter: 2017Q2

REPORT INFORMATION
  Report Type: Spontaneous
  Country: US (occurrence: US)
  Receive Date: 20170608
  Receipt Date: 20170608
  Transmission Date: 20170830
  Serious: No
  Sender: FDA-Public Use
  Company Number: PHEH2017US016448

PATIENT
  Sex: Female

DRUGS (5)
  1. ZOMETA [Suspect]
     Active Substance: ZOLEDRONIC ACID
     Indication: PRODUCT USED FOR UNKNOWN INDICATION
     Route: 042
  2. IBRANCE [Suspect]
     Active Substance: PALBOCICLIB
     Indication: LEUKOPENIA
     Dosage: 125 MG, QD
     Route: 048
     Dates: start: 20150105, end: 20160107
  3. LETROZOLE. [Suspect]
     Active Substance: LETROZOLE
     Indication: PRODUCT USED FOR UNKNOWN INDICATION
     Route: 065
  4. IBRANCE [Suspect]
     Active Substance: PALBOCICLIB
     Indication: BREAST CANCER METASTATIC
     Dosage: 100 MG, QD
     Route: 048
     Dates: start: 20160207
  5. IBRANCE [Suspect]
     Active Substance: PALBOCICLIB
     Indication: METASTASES TO BONE

REACTIONS (10)
  - Gastrooesophageal reflux disease [Unknown]
  - Skin disorder [Unknown]
  - Eye infection [Unknown]
  - Alopecia [Unknown]
  - Nausea [Unknown]
  - Migraine with aura [Unknown]
  - Fatigue [Unknown]
  - Dry eye [Unknown]
  - Conjunctivitis [Unknown]
  - Bone pain [Unknown]
